FAERS Safety Report 9927969 (Version 1)
Quarter: 2014Q1

REPORT INFORMATION
  Report Type: Spontaneous
  Country: US (occurrence: US)
  Receive Date: 20140227
  Receipt Date: 20140227
  Transmission Date: 20141002
  Serious: No
  Sender: FDA-Public Use
  Company Number: US-PFIZER INC-2014055756

PATIENT
  Age: 67 Year
  Sex: Female

DRUGS (7)
  1. ZOLOFT [Suspect]
     Dosage: UNK
  2. TOVIAZ [Suspect]
     Dosage: UNK
  3. SEPTOCAINE [Suspect]
     Dosage: UNK
  4. DESYREL [Suspect]
     Dosage: UNK
  5. SINGULAIR [Suspect]
     Dosage: UNK
  6. SAVELLA [Suspect]
     Dosage: UNK
  7. VIBRAMYCIN [Suspect]
     Dosage: UNK

REACTIONS (1)
  - Drug hypersensitivity [Unknown]
